FAERS Safety Report 4326046-X (Version None)
Quarter: 2004Q1

REPORT INFORMATION
  Report Type: 
  Country: None (occurrence: None)
  Receive Date: 20040323
  Receipt Date: 20040315
  Transmission Date: 20041129
  Serious: Yes (Hospitalization)
  Sender: FDA-Public Use
  Company Number: 30018560-03D10G40-1

PATIENT
  Age: 61 Year
  Sex: Male
  Weight: 102 kg

DRUGS (3)
  1. EXTRANEAL [Suspect]
     Indication: PERITONEAL DIALYSIS
     Dosage: 7.5% ICODEXTRIN 2L QD IP
     Route: 033
     Dates: start: 20030806, end: 20030903
  2. DIANEAL [Concomitant]
  3. NUTRINEAL [Concomitant]

REACTIONS (2)
  - PERITONITIS [None]
  - PYREXIA [None]
